FAERS Safety Report 21404072 (Version 2)
Quarter: 2022Q4

REPORT INFORMATION
  Report Type: Spontaneous
  Country: JP (occurrence: JP)
  Receive Date: 20221003
  Receipt Date: 20221019
  Transmission Date: 20230113
  Serious: Yes (Other)
  Sender: FDA-Public Use
  Company Number: JP-OTSUKA-2022_046661

PATIENT

DRUGS (1)
  1. SAMSCA [Suspect]
     Active Substance: TOLVAPTAN
     Indication: Cardiac failure
     Dosage: 0.5 TABLET ONCE DAILY AFTER BREAKFAST
     Route: 065

REACTIONS (2)
  - Renal impairment [Unknown]
  - Underdose [Unknown]
